FAERS Safety Report 21566627 (Version 2)
Quarter: 2022Q4

REPORT INFORMATION
  Report Type: Spontaneous
  Country: US (occurrence: US)
  Receive Date: 20221108
  Receipt Date: 20221214
  Transmission Date: 20230113
  Serious: Yes (Other)
  Sender: FDA-Public Use
  Company Number: US-PFIZER INC-PV202200098196

PATIENT
  Age: 88 Year
  Sex: Female

DRUGS (1)
  1. PALBOCICLIB [Suspect]
     Active Substance: PALBOCICLIB
     Indication: Breast cancer metastatic
     Dosage: QOD

REACTIONS (5)
  - Pneumonitis [Unknown]
  - Renal disorder [Recovered/Resolved]
  - Blood creatinine increased [Recovered/Resolved]
  - Cystatin C abnormal [Recovered/Resolved]
  - Off label use [Unknown]
